FAERS Safety Report 17120145 (Version 1)
Quarter: 2019Q4

REPORT INFORMATION
  Report Type: Spontaneous
  Country: DE (occurrence: DE)
  Receive Date: 20191206
  Receipt Date: 20191206
  Transmission Date: 20200122
  Serious: Yes (Congenital Anomaly, Other)
  Sender: FDA-Public Use
  Company Number: DE-TORRENT-00016106

PATIENT
  Sex: Female
  Weight: 1 kg

DRUGS (5)
  1. RHOPHYLAC [Concomitant]
     Active Substance: HUMAN RHO(D) IMMUNE GLOBULIN
     Indication: PROPHYLAXIS AGAINST RH ISOIMMUNISATION
     Dosage: 300 [G/D ]
     Route: 064
     Dates: start: 20181101, end: 20181101
  2. L-THYROXIN [Concomitant]
     Active Substance: LEVOTHYROXINE SODIUM
     Indication: HYPOTHYROIDISM
     Dosage: 125 [G/D ]
     Route: 064
     Dates: start: 20180907, end: 20190416
  3. FOLSAURE [Concomitant]
     Active Substance: FOLIC ACID
     Indication: PROPHYLAXIS OF NEURAL TUBE DEFECT
     Dosage: UNKNOWN
     Route: 064
  4. VIMPAT [Suspect]
     Active Substance: LACOSAMIDE
     Indication: EPILEPSY
     Dosage: 300 [MG/D (2 X 150) ] 2 SEPARATED DOSES
     Route: 064
     Dates: start: 20180907, end: 20190416
  5. LAMOTRIGINE. [Suspect]
     Active Substance: LAMOTRIGINE
     Indication: EPILEPSY
     Dosage: 300 [MG/D (2 X 150) ] 2 SEPARATED DOSES
     Route: 064
     Dates: start: 20180907, end: 20190416

REACTIONS (4)
  - Pulmonary artery stenosis [Recovered/Resolved]
  - Atrial septal defect [Not Recovered/Not Resolved]
  - Patent ductus arteriosus [Recovered/Resolved]
  - Foetal exposure during pregnancy [Unknown]
